FAERS Safety Report 15759575 (Version 1)
Quarter: 2018Q4

REPORT INFORMATION
  Report Type: Spontaneous
  Country: ES (occurrence: ES)
  Receive Date: 20181226
  Receipt Date: 20181226
  Transmission Date: 20190205
  Serious: Yes (Other)
  Sender: FDA-Public Use
  Company Number: ES-ACCORD-097552

PATIENT
  Age: 95 Year
  Sex: Male

DRUGS (3)
  1. CEFTRIAXONE. [Interacting]
     Active Substance: CEFTRIAXONE
     Indication: URINARY TRACT INFECTION
     Dosage: 1-0-0
     Route: 042
     Dates: start: 20170829, end: 20170905
  2. FUROSEMIDE. [Suspect]
     Active Substance: FUROSEMIDE
     Indication: URINARY TRACT INFECTION
     Dosage: 20MG
     Route: 042
  3. ACENOCOUMAROL [Interacting]
     Active Substance: ACENOCOUMAROL
     Indication: ATRIAL FIBRILLATION
     Dosage: 1 MG TABLETS, 60 TABLETS ACCORDING TO GUIDELINE
     Route: 048
     Dates: start: 20150420

REACTIONS (3)
  - Hypocoagulable state [Recovered/Resolved]
  - Off label use [Unknown]
  - Drug interaction [Unknown]

NARRATIVE: CASE EVENT DATE: 20170907
